FAERS Safety Report 5153678-1 (Version None)
Quarter: 2006Q4

REPORT INFORMATION
  Report Type: 
  Country: None (occurrence: None)
  Receive Date: 20061114
  Receipt Date: 20061030
  Transmission Date: 20070319
  Serious: Yes (Death)
  Sender: FDA-Public Use
  Company Number: 2006-05285

PATIENT
  Age: 90 Year
  Sex: Female

DRUGS (3)
  1. KENTERA (WATSON LABORATORIES) (OXYBUTYNIN) TRANSDERMAL PATCH, 3.9MG [Suspect]
     Indication: INCONTINENCE
     Dosage: TRANSDERMAL
     Route: 062
     Dates: start: 20060403
  2. FURESE [Concomitant]
  3. ENALAPRIL MALEATE [Concomitant]

REACTIONS (2)
  - AORTIC STENOSIS [None]
  - CARDIAC FAILURE [None]
